FAERS Safety Report 6581478-4 (Version None)
Quarter: 2010Q1

REPORT INFORMATION
  Report Type: 
  Country: None (occurrence: None)
  Receive Date: 20100215
  Receipt Date: 20100205
  Transmission Date: 20100710
  Serious: Yes (Hospitalization, Other)
  Sender: FDA-Public Use
  Company Number: B0595951A

PATIENT
  Age: 80 Year
  Sex: Male

DRUGS (3)
  1. BLINDED TRIAL MEDICATION [Suspect]
     Indication: CEREBROVASCULAR ACCIDENT PROPHYLAXIS
     Route: 048
     Dates: start: 20070615, end: 20090918
  2. ASPIRIN [Suspect]
     Indication: ATRIAL FIBRILLATION
     Dosage: 81MG PER DAY
     Dates: start: 20060101
  3. ZANTAC [Suspect]
     Dosage: 300MG PER DAY
     Dates: start: 20060101

REACTIONS (3)
  - ANAEMIA [None]
  - GASTROINTESTINAL HAEMORRHAGE [None]
  - LOSS OF CONSCIOUSNESS [None]
